FAERS Safety Report 20198323 (Version 1)
Quarter: 2021Q4

REPORT INFORMATION
  Report Type: Report from Study
  Country: CA (occurrence: CA)
  Receive Date: 20211217
  Receipt Date: 20211217
  Transmission Date: 20220303
  Serious: Yes (Other)
  Sender: FDA-Public Use
  Company Number: CA-ABBVIE-21K-028-4200950-00

PATIENT
  Sex: Male

DRUGS (1)
  1. HUMIRA [Suspect]
     Active Substance: ADALIMUMAB
     Indication: Juvenile idiopathic arthritis
     Route: 058
     Dates: start: 20190905

REACTIONS (8)
  - Carpal tunnel syndrome [Unknown]
  - Injection site pain [Unknown]
  - Arthritis [Unknown]
  - Hypoaesthesia [Unknown]
  - Bone erosion [Unknown]
  - Fatigue [Unknown]
  - Carpal tunnel syndrome [Unknown]
  - Product administered at inappropriate site [Unknown]

NARRATIVE: CASE EVENT DATE: 20210101
